FAERS Safety Report 7156320-3 (Version None)
Quarter: 2010Q4

REPORT INFORMATION
  Report Type: 
  Country: None (occurrence: None)
  Receive Date: 20101214
  Receipt Date: 20100413
  Transmission Date: 20110411
  Serious: No
  Sender: FDA-Public Use
  Company Number: -MYLANLABS-2010S1006496

PATIENT
  Sex: Female

DRUGS (3)
  1. PERPHENAZINE AND AMITRIPTYLINE HYDROCHLORIDE TABLETS, USP [Suspect]
     Indication: DEPRESSION
     Route: 048
  2. LORAZEPAM [Concomitant]
  3. TRAZODONE [Concomitant]

REACTIONS (3)
  - PHOTOSENSITIVITY REACTION [None]
  - PYREXIA [None]
  - TEMPERATURE INTOLERANCE [None]
